FAERS Safety Report 23592155 (Version 1)
Quarter: 2024Q1

REPORT INFORMATION
  Report Type: Spontaneous
  Country: US (occurrence: US)
  Receive Date: 20240304
  Receipt Date: 20240304
  Transmission Date: 20240410
  Serious: No
  Sender: FDA-Public Use
  Company Number: US-BIOVITRUM-2024-US-003347

PATIENT
  Age: 10 Month
  Sex: Female
  Weight: 7.98 kg

DRUGS (3)
  1. SYNAGIS [Suspect]
     Active Substance: PALIVIZUMAB
     Indication: Premature baby
     Dosage: ONCE A MONTH
     Route: 030
     Dates: start: 20231207
  2. SYNAGIS [Suspect]
     Active Substance: PALIVIZUMAB
     Indication: Low birth weight baby
  3. ASPIRIN [Concomitant]
     Active Substance: ASPIRIN
     Indication: Product used for unknown indication

REACTIONS (4)
  - Cough [Recovering/Resolving]
  - Nasopharyngitis [Recovering/Resolving]
  - Nasal congestion [Recovering/Resolving]
  - Pyrexia [Recovering/Resolving]
